FAERS Safety Report 25859601 (Version 1)
Quarter: 2025Q3

REPORT INFORMATION
  Report Type: Spontaneous
  Country: US (occurrence: US)
  Receive Date: 20250929
  Receipt Date: 20250929
  Transmission Date: 20251020
  Serious: No
  Sender: BAYER HEALTHCARE PHARMACEUTICALS INC.
  Company Number: US-BAYER-2025A127944

PATIENT

DRUGS (1)
  1. GADAVIST [Suspect]
     Active Substance: GADOBUTROL
     Dates: start: 20250913, end: 20250913

REACTIONS (3)
  - Pruritus [None]
  - Nasal congestion [None]
  - Headache [None]

NARRATIVE: CASE EVENT DATE: 20250913
